FAERS Safety Report 5663704-9 (Version None)
Quarter: 2008Q1

REPORT INFORMATION
  Report Type: 
  Country: None (occurrence: None)
  Receive Date: 20080307
  Receipt Date: 20080222
  Transmission Date: 20080703
  Serious: Yes (Life-Threatening, Hospitalization)
  Sender: FDA-Public Use
  Company Number: 2007S1000564

PATIENT
  Age: 57 Year
  Sex: Female

DRUGS (9)
  1. CUBICIN [Suspect]
     Indication: CARDIAC DISORDER
     Dosage: 350 MG;Q24H;IV
     Route: 042
     Dates: start: 20071125, end: 20071212
  2. MEROPENEM [Concomitant]
  3. ENALAPRIL MALEATE [Concomitant]
  4. TORSEMIDE [Concomitant]
  5. SINTROM [Concomitant]
  6. LANACORDIN [Concomitant]
  7. OXYGEN [Concomitant]
  8. LAMOTRIGINE [Concomitant]
  9. VANCOMYCIN [Concomitant]

REACTIONS (6)
  - CARDIAC ARREST [None]
  - CARDIAC PACEMAKER MALFUNCTION [None]
  - EOSINOPHILIA [None]
  - HYPERSENSITIVITY [None]
  - IMMUNE SYSTEM DISORDER [None]
  - NEPHRITIS INTERSTITIAL [None]
